FAERS Safety Report 19064040 (Version 1)
Quarter: 2021Q1

REPORT INFORMATION
  Report Type: Spontaneous
  Country: AU (occurrence: AU)
  Receive Date: 20210326
  Receipt Date: 20210326
  Transmission Date: 20210420
  Serious: Yes (Hospitalization, Other)
  Sender: FDA-Public Use
  Company Number: AU-ASTRAZENECA-2021A204141

PATIENT
  Age: 65 Year
  Sex: Female

DRUGS (2)
  1. QUETIAPINE. [Suspect]
     Active Substance: QUETIAPINE
     Indication: PRODUCT USED FOR UNKNOWN INDICATION
     Dosage: UPTITRATED FROM 25MG MANE, 25MG MIDI,
     Route: 065
  2. FLUPENTIXOL [Suspect]
     Active Substance: FLUPENTIXOL
     Indication: PRODUCT USED FOR UNKNOWN INDICATION
     Dosage: 50MG DEPOT FORTNIGHTLY
     Route: 065

REACTIONS (3)
  - Lethargy [Unknown]
  - Tachycardia [Not Recovered/Not Resolved]
  - Ventricular extrasystoles [Unknown]
